FAERS Safety Report 9904593 (Version 1)
Quarter: 2014Q1

REPORT INFORMATION
  Report Type: Not Available
  Country: CH (occurrence: CH)
  Receive Date: 20140218
  Receipt Date: 20140218
  Transmission Date: 20141002
  Serious: Yes (Hospitalization)
  Sender: FDA-Public Use
  Company Number: CH-NAPPMUNDI-DEU-2014-0013611

PATIENT
  Age: 69 Year
  Sex: Male

DRUGS (8)
  1. UNIFYL CONTINUS 200 MG TABLETTEN RETARD [Suspect]
     Indication: CHRONIC OBSTRUCTIVE PULMONARY DISEASE
     Dosage: 200 MG, BID
     Route: 048
     Dates: end: 20131213
  2. CIPRALEX [Concomitant]
     Indication: DEPRESSION
     Dosage: 10 MG, DAILY
     Route: 048
  3. TRANXILIUM [Concomitant]
     Indication: DEPRESSION
     Dosage: 10 MG, DAILY
     Route: 048
  4. SPIRIVA [Concomitant]
     Indication: CHRONIC OBSTRUCTIVE PULMONARY DISEASE
     Dosage: 1 DF, DAILY
     Route: 055
  5. SERETIDE [Concomitant]
     Indication: CHRONIC OBSTRUCTIVE PULMONARY DISEASE
     Dosage: 1 DF, BID
     Route: 055
  6. VENTOLIN                           /00139501/ [Concomitant]
     Indication: CHRONIC OBSTRUCTIVE PULMONARY DISEASE
     Dosage: 1 DF, PRN
     Route: 055
  7. DAFALGAN [Concomitant]
     Indication: PAIN
     Dosage: 1 DF, PRN
     Route: 048
  8. OXYGEN [Concomitant]
     Indication: EMPHYSEMA

REACTIONS (9)
  - Therapeutic response increased [Recovered/Resolved]
  - Respiratory alkalosis [Recovered/Resolved]
  - Hypokalaemia [Recovered/Resolved]
  - Atrial fibrillation [Recovering/Resolving]
  - Supraventricular tachycardia [Recovering/Resolving]
  - Renal failure acute [Recovered/Resolved]
  - Leukocytosis [Recovered/Resolved]
  - Abdominal pain [Recovered/Resolved]
  - Vomiting [Recovered/Resolved]
